FAERS Safety Report 7639574-6 (Version None)
Quarter: 2011Q3

REPORT INFORMATION
  Report Type: 
  Country: None (occurrence: None)
  Receive Date: 20110722
  Receipt Date: 20110706
  Transmission Date: 20111222
  Serious: Yes (Hospitalization)
  Sender: FDA-Public Use
  Company Number: 2011MA008006

PATIENT
  Age: 60 Year
  Sex: Male

DRUGS (10)
  1. BARBEXACLONE (BARBEXACLONE) [Suspect]
     Dosage: 225 MG, PO
     Route: 048
     Dates: start: 20090221
  2. BIPERIDEN HYDROCHLORIDE TAB [Suspect]
     Dosage: 4 MG, PO
     Route: 048
     Dates: start: 20090221
  3. GRANULOCYTE GROWTH FACTORS (NO PREF. NAME) [Suspect]
     Dosage: PO
     Route: 048
  4. AMLODIPINE [Suspect]
     Dosage: 5 MG, PO
     Route: 048
     Dates: start: 20090221
  5. FLUPHENAZINE [Suspect]
     Dosage: 4 MG, BID;
     Dates: start: 20090221
  6. PHENYTOIN [Suspect]
     Dosage: 250 MG, PO
     Route: 048
     Dates: start: 20090221
  7. BACTRIM [Suspect]
     Dosage: 1 PO
     Route: 048
     Dates: start: 20090221
  8. RAMIPRIL [Suspect]
     Dosage: 5 MG, PO
     Route: 048
     Dates: start: 20090221
  9. HYDROCHLOROTHIAZIDE [Suspect]
     Dosage: 25 MG, QD,
     Dates: start: 20090221
  10. AMITRIPTYLINE HCL [Suspect]
     Dosage: 75 MG, QD, PO
     Route: 048
     Dates: start: 20090221

REACTIONS (6)
  - AUTOMATISM [None]
  - COMA [None]
  - RESPIRATORY ALKALOSIS [None]
  - HYPERVENTILATION [None]
  - CEREBRAL ISCHAEMIA [None]
  - INAPPROPRIATE ANTIDIURETIC HORMONE SECRETION [None]
